FAERS Safety Report 6662488-5 (Version None)
Quarter: 2010Q1

REPORT INFORMATION
  Report Type: 
  Country: None (occurrence: None)
  Receive Date: 20100329
  Receipt Date: 20100312
  Transmission Date: 20100710
  Serious: Yes (Other)
  Sender: FDA-Public Use
  Company Number: RB-25411-2009

PATIENT
  Age: 26 Year
  Sex: Female
  Weight: 158 kg

DRUGS (3)
  1. MUCINEX [Suspect]
     Indication: NASAL CONGESTION
     Dosage: 1200 MG TOTAL ORAL
     Route: 048
     Dates: start: 20090312
  2. MULTIVITAMIN AND MINERAL [Concomitant]
  3. ORAL CONTRACEPTIVE NOS [Concomitant]

REACTIONS (11)
  - CHOKING [None]
  - COUGH [None]
  - CYANOSIS [None]
  - DYSPHAGIA [None]
  - DYSPNOEA [None]
  - FOREIGN BODY [None]
  - OESOPHAGEAL STENOSIS [None]
  - OESOPHAGEAL ULCER PERFORATION [None]
  - OESOPHAGITIS [None]
  - OROPHARYNGEAL PAIN [None]
  - PHARYNGOESOPHAGEAL DIVERTICULUM [None]
